FAERS Safety Report 15500907 (Version 2)
Quarter: 2018Q4

REPORT INFORMATION
  Report Type: Spontaneous
  Country: US (occurrence: US)
  Receive Date: 20181015
  Receipt Date: 20181019
  Transmission Date: 20190205
  Serious: No
  Sender: FDA-Public Use
  Company Number: US-PFIZER INC-2018410952

PATIENT
  Sex: Female

DRUGS (4)
  1. MELATONIN [Concomitant]
     Active Substance: MELATONIN
     Indication: SLEEP DISORDER
     Dosage: AT NIGHT
  2. GABAPENTIN. [Suspect]
     Active Substance: GABAPENTIN
     Dosage: 300 MG, 3X/DAY
     Dates: start: 201810
  3. DRAMAMINE [Concomitant]
     Active Substance: DIMENHYDRINATE
     Indication: SLEEP DISORDER
     Dosage: AS NEEDED
  4. GABAPENTIN. [Suspect]
     Active Substance: GABAPENTIN
     Indication: NERVE INJURY
     Dosage: UNK
     Dates: start: 20181003, end: 201810

REACTIONS (3)
  - Drug ineffective for unapproved indication [Unknown]
  - Therapeutic response unexpected [Unknown]
  - Somnolence [Unknown]
